FAERS Safety Report 7759136-X (Version None)
Quarter: 2011Q3

REPORT INFORMATION
  Report Type: 
  Country: None (occurrence: None)
  Receive Date: 20110919
  Receipt Date: 20110914
  Transmission Date: 20111222
  Serious: Yes (Hospitalization)
  Sender: FDA-Public Use
  Company Number: PHHY2011DE67028

PATIENT
  Sex: Female

DRUGS (6)
  1. ZOLEDRONOC ACID [Suspect]
     Dosage: 5 MG,  YEARLY
     Route: 042
     Dates: start: 20100721
  2. DICLOFENAC SODIUM [Concomitant]
     Indication: POLYARTHRITIS
     Dosage: 150 MG/DAY
     Route: 048
  3. PREDNISOLONE [Concomitant]
     Indication: POLYARTHRITIS
     Dosage: 3 MG/DAY
     Route: 048
  4. ZOLEDRONOC ACID [Suspect]
     Indication: OSTEOPOROSIS
     Dosage: 5 MG, YEARLY
     Route: 042
     Dates: start: 20090626
  5. ANTIHYPERTENSIVES [Concomitant]
     Dosage: UNK UKN, UNK
  6. PREDNISOLONE [Concomitant]
     Dosage: 5 MG/ DAY
     Route: 048

REACTIONS (4)
  - TRANSIENT ISCHAEMIC ATTACK [None]
  - CEREBRAL HAEMORRHAGE [None]
  - GLOMERULAR FILTRATION RATE DECREASED [None]
  - AMAUROSIS FUGAX [None]
